FAERS Safety Report 6120461-X (Version None)
Quarter: 2009Q1

REPORT INFORMATION
  Report Type: 
  Country: None (occurrence: None)
  Receive Date: 20090317
  Receipt Date: 20090309
  Transmission Date: 20090719
  Serious: Yes (Hospitalization)
  Sender: FDA-Public Use
  Company Number: CH-JNJFOC-20081003958

PATIENT
  Age: 63 Year
  Sex: Male
  Weight: 88.1 kg

DRUGS (16)
  1. HALDOL [Suspect]
     Route: 048
  2. HALDOL [Suspect]
     Route: 048
  3. HALDOL [Suspect]
     Route: 048
  4. HALDOL [Suspect]
     Route: 048
  5. HALDOL [Suspect]
     Indication: SCHIZOPHRENIA, PARANOID TYPE
     Route: 048
  6. DIPIPERON [Suspect]
     Indication: SCHIZOPHRENIA, PARANOID TYPE
     Route: 048
  7. VALPROATE SODIUM [Concomitant]
     Route: 048
  8. VALPROATE SODIUM [Concomitant]
     Route: 048
  9. VALPROATE SODIUM [Concomitant]
     Route: 048
  10. VALIUM [Concomitant]
     Route: 048
  11. VALIUM [Concomitant]
     Route: 048
  12. VALIUM [Concomitant]
     Route: 048
  13. AKINETON [Concomitant]
     Route: 048
  14. PRADIF [Concomitant]
     Route: 065
  15. MAGNESIOCARD [Concomitant]
     Route: 048
  16. STILNOX [Concomitant]
     Route: 048

REACTIONS (5)
  - ATRIAL FIBRILLATION [None]
  - CARDIOMYOPATHY [None]
  - DYSPNOEA [None]
  - OEDEMA PERIPHERAL [None]
  - STRAWBERRY TONGUE [None]
